FAERS Safety Report 9469261 (Version 1)
Quarter: 2013Q3

REPORT INFORMATION
  Report Type: Spontaneous
  Country: US (occurrence: US)
  Receive Date: 20130821
  Receipt Date: 20130821
  Transmission Date: 20140515
  Serious: No
  Sender: FDA-Public Use
  Company Number: US-PFIZER INC-2013241927

PATIENT
  Age: 71 Year
  Sex: Female

DRUGS (2)
  1. NEURONTIN [Suspect]
     Indication: FIBROMYALGIA
     Dosage: (1 TO 3 A DAY)
  2. NEURONTIN [Suspect]
     Dosage: UNK, 1X/DAY ( ONE AT BEDTIME)

REACTIONS (2)
  - Off label use [Unknown]
  - Headache [Unknown]
